FAERS Safety Report 26196371 (Version 1)
Quarter: 2025Q4

REPORT INFORMATION
  Report Type: Spontaneous
  Country: EU (occurrence: EU)
  Receive Date: 20251224
  Receipt Date: 20251224
  Transmission Date: 20260119
  Serious: Yes (Other)
  Sender: CELLTRION
  Company Number: EU-ABBVIE-6572760

PATIENT

DRUGS (7)
  1. ADALIMUMAB [Suspect]
     Active Substance: ADALIMUMAB
     Indication: Colitis ulcerative
     Dosage: UNK
     Route: 058
     Dates: start: 20210114
  2. ADALIMUMAB [Suspect]
     Active Substance: ADALIMUMAB
     Dosage: EVERY 7 DAYS
     Route: 058
     Dates: start: 20230719
  3. USTEKINUMAB [Suspect]
     Active Substance: USTEKINUMAB
     Indication: Arthralgia
     Dosage: EVERY 8 WEEKS
     Dates: start: 20231024, end: 20250718
  4. PREDNISONE ACETATE [Concomitant]
     Active Substance: PREDNISONE ACETATE
     Indication: Rheumatoid arthritis
     Dosage: 40 MILLIGRAM, EVERY 1 DAY
  5. PREDNISONE ACETATE [Concomitant]
     Active Substance: PREDNISONE ACETATE
     Indication: Colitis ulcerative
     Dosage: 20 MILLIGRAM, EVERY 1 DAY
     Dates: start: 20210311
  6. PREDNISONE ACETATE [Concomitant]
     Active Substance: PREDNISONE ACETATE
     Dosage: 40 MILLIGRAM, EVERY 1 DAY
     Dates: start: 20230803
  7. PREDNISONE ACETATE [Concomitant]
     Active Substance: PREDNISONE ACETATE
     Dosage: 20 MILLIGRAM, EVERY 1 DAY
     Dates: start: 20250523, end: 20251104

REACTIONS (6)
  - Colitis ulcerative [Unknown]
  - Gait inability [Unknown]
  - Fatigue [Unknown]
  - Live birth [Unknown]
  - Maternal exposure during pregnancy [Unknown]
  - Intentional product use issue [Unknown]

NARRATIVE: CASE EVENT DATE: 20230101
